FAERS Safety Report 18341169 (Version 1)
Quarter: 2020Q4

REPORT INFORMATION
  Report Type: Report from Study
  Country: CA (occurrence: CA)
  Receive Date: 20201003
  Receipt Date: 20201003
  Transmission Date: 20210113
  Serious: Yes (Other)
  Sender: FDA-Public Use
  Company Number: CA-ACCORD-203854

PATIENT
  Age: 56 Year
  Sex: Female

DRUGS (7)
  1. RIBOCICLIB. [Suspect]
     Active Substance: RIBOCICLIB
     Indication: BREAST CANCER METASTATIC
  2. ZOMETA [Suspect]
     Active Substance: ZOLEDRONIC ACID
     Indication: BREAST CANCER METASTATIC
  3. GOSERELIN/GOSERELIN ACETATE [Suspect]
     Active Substance: GOSERELIN
     Indication: BREAST CANCER METASTATIC
  4. TAMOXIFEN [Suspect]
     Active Substance: TAMOXIFEN
     Indication: BREAST CANCER METASTATIC
  5. TAMOXIFEN [Suspect]
     Active Substance: TAMOXIFEN
     Indication: BREAST CANCER METASTATIC
  6. LETROZOLE. [Suspect]
     Active Substance: LETROZOLE
     Indication: BREAST CANCER METASTATIC
     Dosage: 1 EVERY 1 DAYS
     Route: 048
  7. LETROZOLE. [Suspect]
     Active Substance: LETROZOLE
     Indication: BREAST CANCER METASTATIC
     Dosage: 1 EVERY 1 DAYS
     Route: 048

REACTIONS (11)
  - Metastases to pelvis [Unknown]
  - Gastrointestinal disorder [Unknown]
  - Breast cancer metastatic [Unknown]
  - Herpes zoster [Unknown]
  - Malignant neoplasm progression [Unknown]
  - Skin fragility [Unknown]
  - Deep vein thrombosis [Unknown]
  - Metastases to bone [Unknown]
  - Pain [Unknown]
  - Skin burning sensation [Unknown]
  - Menstruation irregular [Unknown]
